FAERS Safety Report 6676477-8 (Version None)
Quarter: 2010Q2

REPORT INFORMATION
  Report Type: 
  Country: None (occurrence: None)
  Receive Date: 20100412
  Receipt Date: 20100407
  Transmission Date: 20101027
  Serious: Yes (Death)
  Sender: FDA-Public Use
  Company Number: PHHY2009JP37123

PATIENT
  Sex: Male

DRUGS (6)
  1. TASIGNA [Suspect]
     Indication: CHRONIC MYELOID LEUKAEMIA
     Dosage: 400 MG DAILY
     Route: 048
     Dates: start: 20090530, end: 20090605
  2. TASIGNA [Suspect]
     Dosage: 800 MG DAILY
     Dates: start: 20090606, end: 20090609
  3. NOVORAPID [Concomitant]
     Indication: DIABETES MELLITUS
     Dosage: 10 IU; UNK
     Route: 058
     Dates: start: 20090111, end: 20090607
  4. VFEND [Concomitant]
     Indication: BRONCHOPULMONARY ASPERGILLOSIS
     Dosage: 300 MG, UNK
     Route: 042
     Dates: start: 20090228, end: 20090708
  5. AMBISOME [Concomitant]
     Indication: BRONCHOPULMONARY ASPERGILLOSIS
     Dosage: 350 MG, UNK
     Route: 042
     Dates: start: 20090222, end: 20090708
  6. OXYCONTIN [Concomitant]
     Indication: CHRONIC MYELOID LEUKAEMIA
     Dosage: 10 MG, UNK
     Route: 048
     Dates: start: 20090319, end: 20090708

REACTIONS (7)
  - BLOOD ALKALINE PHOSPHATASE INCREASED [None]
  - CHRONIC MYELOID LEUKAEMIA [None]
  - CHRONIC MYELOID LEUKAEMIA TRANSFORMATION [None]
  - HEPATIC ENZYME INCREASED [None]
  - MALIGNANT NEOPLASM PROGRESSION [None]
  - PANCYTOPENIA [None]
  - SEPSIS [None]
